FAERS Safety Report 10044507 (Version 1)
Quarter: 2014Q1

REPORT INFORMATION
  Report Type: Spontaneous
  Country: US (occurrence: None)
  Receive Date: 20140326
  Receipt Date: 20140326
  Transmission Date: 20141002
  Serious: Yes (Other)
  Sender: FDA-Public Use
  Company Number: 14AE013

PATIENT
  Age: 90 Year
  Sex: Female

DRUGS (2)
  1. DOXYLAMINE SUCCINATE [Suspect]
     Indication: SLEEP DISORDER
     Dosage: 1 BY MOUTH/ONCE
     Route: 048
     Dates: start: 20140313
  2. MELOXICAM [Concomitant]

REACTIONS (1)
  - Burning sensation [None]
